FAERS Safety Report 9519683 (Version 1)
Quarter: 2013Q1

REPORT INFORMATION
  Report Type: Spontaneous
  Country: US (occurrence: None)
  Receive Date: 20130305
  Receipt Date: 20130305
  Transmission Date: 20140127
  Serious: Yes (Hospitalization)
  Sender: FDA-Public Use
  Company Number: 163-21880-12010907

PATIENT
  Age: 76 Year
  Sex: Male
  Weight: 81.65 kg

DRUGS (8)
  1. REVLIMID [Suspect]
     Indication: PLASMA CELL MYELOMA
     Dosage: 15 MG, 1 IN 1 D, PO
     Route: 048
     Dates: start: 201109
  2. NITROGLYCERINE (GLYCERYL TRINITRATE) (UNKNOWN) [Concomitant]
  3. ISOSORBIDE MONONITRATE (ISOSORBIDE MONONITRATE (UNKNOWN) [Concomitant]
  4. DEXAMETHASONE (DEXAMETHASONE) (UNKNOWN) [Concomitant]
  5. PLAVIX (CLOPIDOGREL SULFATE) (UNKNOWN) [Concomitant]
  6. LASIX (FUROSEMIDE) (UNKNOWN) [Concomitant]
  7. SIMVASTATIN [Concomitant]
  8. NORVASC (AMLODIPINE BESILATE) (UNKNOWN) [Concomitant]

REACTIONS (2)
  - Cardiac failure congestive [None]
  - Pneumonia [None]
